FAERS Safety Report 12877256 (Version 1)
Quarter: 2016Q4

REPORT INFORMATION
  Report Type: Spontaneous
  Country: US (occurrence: US)
  Receive Date: 20161021
  Receipt Date: 20161021
  Transmission Date: 20170207
  Serious: No
  Sender: FDA-Public Use
  Company Number: None

PATIENT
  Age: 63 Year
  Sex: Male

DRUGS (1)
  1. STELARA [Suspect]
     Active Substance: USTEKINUMAB
     Indication: PSORIASIS
     Dosage: EVER 12 WEEKS
     Route: 058
     Dates: start: 20160401, end: 20160826

REACTIONS (4)
  - Skin exfoliation [None]
  - General symptom [None]
  - Haemorrhage [None]
  - Condition aggravated [None]

NARRATIVE: CASE EVENT DATE: 20160826
